FAERS Safety Report 8172962 (Version 3)
Quarter: 2012Q4

REPORT INFORMATION
  Report Type: 
  Country: CA (occurrence: CA)
  Receive Date: 20111007
  Receipt Date: 20121008
  Transmission Date: 20130627
  Serious: Yes (Other)
  Sender: FDA-Public Use
  Company Number: PHHY2010CA74797

PATIENT
  Sex: Female

DRUGS (1)
  1. ZOMETA [Suspect]
     Indication: BREAST CANCER
     Dosage: 4 mg, every 6 months
     Route: 042
     Dates: start: 20101001

REACTIONS (5)
  - Tooth infection [Unknown]
  - Oropharyngeal pain [Not Recovered/Not Resolved]
  - Dry throat [Not Recovered/Not Resolved]
  - Blood pressure increased [Unknown]
  - Cough [Unknown]
